FAERS Safety Report 8941841 (Version 1)
Quarter: 2012Q4

REPORT INFORMATION
  Report Type: 
  Country: ES (occurrence: ES)
  Receive Date: 20121203
  Receipt Date: 20121203
  Transmission Date: 20130627
  Serious: Yes (Death, Hospitalization, Other)
  Sender: FDA-Public Use
  Company Number: PHHO2012ES004570

PATIENT
  Age: 71 Year
  Sex: Male
  Weight: 69.5 kg

DRUGS (18)
  1. ENALAPRIL [Suspect]
     Indication: CARDIAC FAILURE CHRONIC
     Dosage: UNK
     Route: 048
     Dates: start: 20111128, end: 20120428
  2. SINTROM [Suspect]
     Indication: ATRIAL FIBRILLATION
     Dosage: 4 mg, according to hematology
     Dates: start: 19990623, end: 20120311
  3. SINTROM [Suspect]
     Dosage: 4 mg, UNK
     Dates: end: 20120427
  4. ZOLPIDEM [Suspect]
     Dosage: 10 mg, QD
     Dates: start: 200801
  5. DIGOXIN [Concomitant]
     Indication: ATRIAL FIBRILLATION
     Dosage: 0.25 mg/ vo 3 days a week
     Route: 048
     Dates: start: 19990618, end: 20120311
  6. DIGOXIN [Concomitant]
     Dosage: 0.25 mg/ vo 3 days a week
     Route: 048
     Dates: start: 20120313
  7. FUROSEMIDE [Concomitant]
     Indication: CARDIAC FAILURE
     Dosage: 40 mg, TID
     Dates: start: 20120209, end: 20120427
  8. BISOPROLOL [Concomitant]
     Indication: CARDIAC FAILURE
     Dosage: 5 mg, QD
     Dates: start: 20120217, end: 20120427
  9. IRON [Concomitant]
     Indication: THALASSAEMIA BETA
     Dosage: UNK
     Dates: end: 20120207
  10. AMIODARONE [Concomitant]
     Indication: ATRIAL FIBRILLATION
     Dosage: 200 mg/ vo 5 day per week
     Dates: start: 20111115, end: 20120428
  11. EPLERENONE [Concomitant]
     Indication: HYPERTENSION
     Dosage: 25 mg, QD
     Route: 048
     Dates: start: 200801
  12. METFORMINA ^NOVARTIS^ [Concomitant]
     Indication: TYPE 2 DIABETES MELLITUS
     Dosage: 850 mg, TID
     Route: 048
     Dates: start: 20060823, end: 20120311
  13. LORAZEPAM [Concomitant]
     Dosage: 1 mg, at night
  14. PRAVASTATIN [Concomitant]
     Dosage: 20 mg, QD
  15. CARVEDILOL [Concomitant]
     Indication: CARDIAC FAILURE
     Dosage: 25 mg, BID
     Route: 048
     Dates: start: 2008
  16. DUTASTERIDE [Concomitant]
     Indication: BENIGN PROSTATIC HYPERPLASIA
     Dosage: 500 ug 1 tablet daily
     Dates: end: 20120402
  17. TAMSULOSIN [Concomitant]
     Indication: BENIGN PROSTATIC HYPERPLASIA
     Dosage: 1 tablet daily
     Dates: end: 20120402
  18. LANTUS [Concomitant]
     Dosage: 16 UI at night

REACTIONS (8)
  - Leukocytoclastic vasculitis [Fatal]
  - Overdose [Recovered/Resolved]
  - Cardiac failure [Fatal]
  - Sepsis [Fatal]
  - Congestive cardiomyopathy [Not Recovered/Not Resolved]
  - Renal failure chronic [Recovering/Resolving]
  - Hepatocellular injury [Recovered/Resolved]
  - Ischaemia [Unknown]
